FAERS Safety Report 11368399 (Version 1)
Quarter: 2015Q3

REPORT INFORMATION
  Report Type: Spontaneous
  Country: TW (occurrence: None)
  Receive Date: 20150810
  Receipt Date: 20150810
  Transmission Date: 20151125
  Serious: Yes (Hospitalization, Other)
  Sender: FDA-Public Use
  Company Number: 2015-11878

PATIENT
  Age: 63 Year
  Sex: Male
  Weight: 66.5 kg

DRUGS (3)
  1. EYLEA [Suspect]
     Active Substance: AFLIBERCEPT
     Indication: POLYPOIDAL CHOROIDAL VASCULOPATHY
     Dosage: BASELINE (WEEK
     Dates: start: 20150209, end: 20150209
  2. DIFENIDOL HYDROCHLORIDE [Concomitant]
     Active Substance: DIPHENIDOL HYDROCHLORIDE
  3. DIAZEPAM. [Concomitant]
     Active Substance: DIAZEPAM

REACTIONS (1)
  - Angina unstable [None]

NARRATIVE: CASE EVENT DATE: 20150720
